FAERS Safety Report 10583334 (Version 1)
Quarter: 2014Q4

REPORT INFORMATION
  Report Type: Spontaneous
  Country: US (occurrence: None)
  Receive Date: 20141112
  Receipt Date: 20141112
  Transmission Date: 20150529
  Serious: Yes (Death, Hospitalization)
  Sender: FDA-Public Use
  Company Number: IPC201410-000584

PATIENT
  Age: 45 Year
  Sex: Female

DRUGS (1)
  1. ALLOPURINOL. [Suspect]
     Active Substance: ALLOPURINOL
     Route: 048

REACTIONS (13)
  - Blood alkaline phosphatase increased [None]
  - Dyspnoea [None]
  - Swelling face [None]
  - Dermatitis exfoliative [None]
  - Alanine aminotransferase increased [None]
  - Brain herniation [None]
  - Cerebral haemorrhage [None]
  - Drug reaction with eosinophilia and systemic symptoms [None]
  - Dysphagia [None]
  - Pyrexia [None]
  - Hepatic enzyme increased [None]
  - Acute kidney injury [None]
  - Aspartate aminotransferase increased [None]
